FAERS Safety Report 25361934 (Version 4)
Quarter: 2025Q3

REPORT INFORMATION
  Report Type: Spontaneous
  Country: EU (occurrence: EU)
  Receive Date: 20250527
  Receipt Date: 20250707
  Transmission Date: 20251021
  Serious: Yes (Death, Life-Threatening, Hospitalization, Other)
  Sender: AUROBINDO
  Company Number: EU-AUROBINDO-AUR-APL-2025-026536

PATIENT
  Age: 67 Year
  Sex: Male

DRUGS (4)
  1. METFORMIN HYDROCHLORIDE [Interacting]
     Active Substance: METFORMIN HYDROCHLORIDE
     Indication: Type 2 diabetes mellitus
     Route: 048
  2. BIKTARVY [Suspect]
     Active Substance: BICTEGRAVIR SODIUM\EMTRICITABINE\TENOFOVIR ALAFENAMIDE FUMARATE
     Indication: HIV infection
     Route: 048
  3. SULFAMETHOXAZOLE\TRIMETHOPRIM [Concomitant]
     Active Substance: SULFAMETHOXAZOLE\TRIMETHOPRIM
     Indication: Product used for unknown indication
     Route: 065
  4. PROPOFOL [Concomitant]
     Active Substance: PROPOFOL
     Indication: Product used for unknown indication
     Route: 065

REACTIONS (14)
  - Poisoning deliberate [Fatal]
  - Ischaemic hepatitis [Fatal]
  - Hepatic cytolysis [Fatal]
  - Disseminated intravascular coagulation [Fatal]
  - Acute respiratory failure [Fatal]
  - Acute kidney injury [Fatal]
  - Lactic acidosis [Fatal]
  - Shock [Fatal]
  - Acute hepatic failure [Fatal]
  - Drug interaction [Fatal]
  - Toxicity to various agents [Fatal]
  - Intentional overdose [Fatal]
  - Haemodynamic instability [Fatal]
  - Intentional product misuse [Fatal]
